FAERS Safety Report 10152158 (Version 1)
Quarter: 2014Q2

REPORT INFORMATION
  Report Type: Spontaneous
  Country: US (occurrence: US)
  Receive Date: 20140505
  Receipt Date: 20140505
  Transmission Date: 20141212
  Serious: Yes (Other)
  Sender: FDA-Public Use
  Company Number: US-BAYER-2014-064498

PATIENT
  Age: 89 Year
  Sex: Female
  Weight: 49 kg

DRUGS (1)
  1. ALEVE LIQUID GELS [Suspect]
     Indication: PAIN
     Dosage: 1 DF, QD
     Route: 048
     Dates: start: 20140426, end: 20140429

REACTIONS (2)
  - Cardiac flutter [Recovered/Resolved]
  - Drug ineffective [None]
